FAERS Safety Report 17386921 (Version 2)
Quarter: 2020Q3

REPORT INFORMATION
  Report Type: Spontaneous
  Country: US (occurrence: US)
  Receive Date: 20200206
  Receipt Date: 20200729
  Transmission Date: 20201102
  Serious: Yes (Death, Other)
  Sender: FDA-Public Use
  Company Number: US-GILEAD-2020-0449854

PATIENT
  Age: 36 Year
  Sex: Female
  Weight: 40 kg

DRUGS (2)
  1. OXYGEN. [Concomitant]
     Active Substance: OXYGEN
  2. YESCARTA [Suspect]
     Active Substance: AXICABTAGENE CILOLEUCEL
     Indication: B-CELL LYMPHOMA
     Dosage: SINGLE
     Route: 042
     Dates: start: 20200115, end: 20200115

REACTIONS (3)
  - B-cell lymphoma [Fatal]
  - Cytokine release syndrome [Not Recovered/Not Resolved]
  - Acute pulmonary oedema [Unknown]

NARRATIVE: CASE EVENT DATE: 20200118
